FAERS Safety Report 9231791 (Version 2)
Quarter: 2013Q2

REPORT INFORMATION
  Report Type: Spontaneous
  Country: US (occurrence: US)
  Receive Date: 20130415
  Receipt Date: 20130529
  Transmission Date: 20140414
  Serious: Yes (Hospitalization, Other)
  Sender: FDA-Public Use
  Company Number: US-ALEXION PHARMACEUTICALS INC.-A201300788

PATIENT
  Age: 43 Year
  Sex: Male
  Weight: 79.8 kg

DRUGS (2)
  1. SOLIRIS 300MG [Suspect]
     Indication: HAEMOLYTIC URAEMIC SYNDROME
     Dosage: UNK
     Route: 042
     Dates: end: 20130206
  2. SOLIRIS 300MG [Suspect]
     Indication: THROMBOTIC THROMBOCYTOPENIC PURPURA

REACTIONS (2)
  - Renal artery stenosis [Unknown]
  - Malignant hypertension [Recovering/Resolving]
